FAERS Safety Report 5074776-7 (Version None)
Quarter: 2006Q3

REPORT INFORMATION
  Report Type: 
  Country: None (occurrence: None)
  Receive Date: 20060807
  Receipt Date: 20060725
  Transmission Date: 20061208
  Serious: Yes (Hospitalization)
  Sender: FDA-Public Use
  Company Number: 2006092264

PATIENT
  Age: 83 Year
  Sex: Female
  Weight: 66 kg

DRUGS (6)
  1. CELEBREX [Suspect]
     Indication: PAIN
     Dosage: (100 MG, PRN), ORAL
     Route: 048
     Dates: start: 20060615, end: 20060626
  2. TAMBOCOR [Concomitant]
  3. MODURETIC 5-50 [Concomitant]
  4. SELOKEEN ZOC (METOPROLOL SUCCINATE) [Concomitant]
  5. ASCAL CARDIO (CARBASALATE CALCIUM) [Concomitant]
  6. ACETAMINOPHEN [Concomitant]

REACTIONS (1)
  - HEPATITIS TOXIC [None]
